FAERS Safety Report 14373909 (Version 1)
Quarter: 2018Q1

REPORT INFORMATION
  Report Type: Report from Study
  Country: None (occurrence: US)
  Receive Date: 20180111
  Receipt Date: 20180111
  Transmission Date: 20180509
  Serious: Yes (Hospitalization, Other)
  Sender: FDA-Public Use
  Company Number: US-ABBVIE-17K-163-2197475-00

PATIENT
  Age: 36 Year
  Sex: Female
  Weight: 54.48 kg

DRUGS (4)
  1. ESTROGEN [Concomitant]
     Active Substance: ESTROGENS
     Indication: POSTMENOPAUSE
  2. HUMIRA [Suspect]
     Active Substance: ADALIMUMAB
     Indication: CROHN^S DISEASE
     Route: 058
     Dates: end: 2017
  3. HUMIRA [Suspect]
     Active Substance: ADALIMUMAB
     Route: 058
     Dates: start: 201707
  4. TYLENOL [Concomitant]
     Active Substance: ACETAMINOPHEN
     Indication: PAIN

REACTIONS (9)
  - Pelvic abscess [Recovered/Resolved]
  - Pyrexia [Unknown]
  - Post procedural discharge [Unknown]
  - Fistula [Recovered/Resolved]
  - Fistula [Recovered/Resolved]
  - Impaired healing [Recovering/Resolving]
  - Pelvic abscess [Recovered/Resolved]
  - Crohn^s disease [Recovering/Resolving]
  - Wound complication [Unknown]

NARRATIVE: CASE EVENT DATE: 2017
